FAERS Safety Report 23725687 (Version 1)
Quarter: 2024Q2

REPORT INFORMATION
  Report Type: Spontaneous
  Country: TR (occurrence: TR)
  Receive Date: 20240410
  Receipt Date: 20240410
  Transmission Date: 20240715
  Serious: Yes (Hospitalization, Other)
  Sender: FDA-Public Use
  Company Number: TR-IPCA LABORATORIES LIMITED-IPC-2024-TR-000830

PATIENT

DRUGS (1)
  1. METFORMIN HYDROCHLORIDE [Suspect]
     Active Substance: METFORMIN HYDROCHLORIDE
     Indication: Suicide attempt
     Dosage: 1000 MILLIGRAM
     Route: 048

REACTIONS (5)
  - Hyperlactacidaemia [Recovering/Resolving]
  - Hypotension [Recovering/Resolving]
  - Toxicity to various agents [Unknown]
  - Suicide attempt [Unknown]
  - Overdose [Unknown]
